FAERS Safety Report 8357088-5 (Version None)
Quarter: 2012Q2

REPORT INFORMATION
  Report Type: 
  Country: None (occurrence: None)
  Receive Date: 20120514
  Receipt Date: 20120508
  Transmission Date: 20120825
  Serious: Yes (Other)
  Sender: FDA-Public Use
  Company Number: US-PFIZER INC-2012097754

PATIENT
  Sex: Female

DRUGS (2)
  1. XYLITOL [Suspect]
     Dosage: UNK
  2. GABAPENTIN [Suspect]
     Indication: NEUROPATHY PERIPHERAL
     Dosage: UNK
     Route: 048

REACTIONS (1)
  - ANAPHYLACTIC REACTION [None]
